FAERS Safety Report 7823758-8 (Version None)
Quarter: 2011Q4

REPORT INFORMATION
  Report Type: 
  Country: None (occurrence: None)
  Receive Date: 20111019
  Receipt Date: 20111012
  Transmission Date: 20120403
  Serious: No
  Sender: FDA-Public Use
  Company Number: US-PFIZER INC-2011215848

PATIENT
  Sex: Female

DRUGS (2)
  1. SUTENT [Suspect]
     Indication: GASTROINTESTINAL STROMAL TUMOUR
     Dosage: 37.5 MG, 1X/DAY, 4 WEEKS THEN 2 WEKS OFF
     Route: 048
     Dates: start: 20060101
  2. ZOLOFT [Concomitant]
     Dosage: 50 MG, 1X/DAY

REACTIONS (1)
  - BLOOD CREATINE PHOSPHOKINASE INCREASED [None]
